FAERS Safety Report 6945860-5 (Version None)
Quarter: 2010Q3

REPORT INFORMATION
  Report Type: 
  Country: None (occurrence: None)
  Receive Date: 20100827
  Receipt Date: 20100818
  Transmission Date: 20110219
  Serious: Yes (Life-Threatening, Hospitalization, Disabling)
  Sender: FDA-Public Use
  Company Number: NL-AMGEN-US400154

PATIENT
  Age: 53 Year
  Sex: Male
  Weight: 82 kg

DRUGS (15)
  1. ENBREL [Suspect]
     Indication: RHEUMATOID ARTHRITIS
     Route: 058
     Dates: start: 20081020, end: 20100701
  2. ENBREL [Suspect]
     Indication: PSORIATIC ARTHROPATHY
  3. METHOTREXATE [Suspect]
     Indication: PRODUCT USED FOR UNKNOWN INDICATION
     Dates: start: 20040101, end: 20100601
  4. OMEPRAZOLE [Concomitant]
  5. FOLIC ACID [Concomitant]
  6. ACETAMINOPHEN [Concomitant]
  7. ASPIRIN [Concomitant]
  8. SIMVASTATIN [Concomitant]
     Dosage: 40 MG
  9. CLOPIDOGREL [Concomitant]
  10. LIPITOR [Concomitant]
  11. NIFEDIPINE [Concomitant]
  12. NITROLINGUAL [Concomitant]
     Dosage: 0.4 MG IF NECESSARY
  13. PANTOPRAZOLE [Concomitant]
  14. PERINDOPRIL [Concomitant]
  15. EZETIMIBE/SIMVASTATIN [Concomitant]
     Dosage: 40 MG EVERY

REACTIONS (3)
  - ANGINA PECTORIS [None]
  - CARDIAC FAILURE [None]
  - MYOCARDIAL INFARCTION [None]
